FAERS Safety Report 10296870 (Version 1)
Quarter: 2014Q3

REPORT INFORMATION
  Report Type: Spontaneous
  Country: NO (occurrence: NO)
  Receive Date: 20140710
  Receipt Date: 20140710
  Transmission Date: 20150326
  Serious: Yes (Death)
  Sender: FDA-Public Use
  Company Number: NO-RB PHARMACEUTICALS LIMITED-RB-69539-2014

PATIENT

DRUGS (3)
  1. SUBUTEX [Suspect]
     Active Substance: BUPRENORPHINE HYDROCHLORIDE
     Indication: DRUG WITHDRAWAL MAINTENANCE THERAPY
     Dosage: 16 MG
     Route: 060
     Dates: start: 20140317, end: 20140325
  2. LYRICA [Concomitant]
     Active Substance: PREGABALIN
     Indication: PRODUCT USED FOR UNKNOWN INDICATION
     Route: 065
  3. SUBOXONE [Suspect]
     Active Substance: BUPRENORPHINE HYDROCHLORIDE\NALOXONE HYDROCHLORIDE
     Indication: DRUG WITHDRAWAL MAINTENANCE THERAPY
     Dosage: 18 MG, UNK
     Route: 002
     Dates: start: 20140114, end: 20140317

REACTIONS (3)
  - Generalised oedema [Fatal]
  - Pain in extremity [Unknown]
  - Face oedema [None]

NARRATIVE: CASE EVENT DATE: 201401
